FAERS Safety Report 5553066-X (Version None)
Quarter: 2007Q4

REPORT INFORMATION
  Report Type: 
  Country: None (occurrence: None)
  Receive Date: 20071205
  Receipt Date: 20071126
  Transmission Date: 20080405
  Serious: Yes (Other)
  Sender: FDA-Public Use
  Company Number: 2007336080

PATIENT
  Age: 3 Year
  Sex: Male
  Weight: 13.6079 kg

DRUGS (2)
  1. SUDAFED S.A. [Suspect]
     Indication: COUGH
     Dosage: 1 TSP EVERY 6 HOURS, ORAL
     Route: 048
     Dates: start: 20071123, end: 20071126
  2. SUDAFED S.A. [Suspect]
     Indication: NASOPHARYNGITIS
     Dosage: 1 TSP EVERY 6 HOURS, ORAL
     Route: 048
     Dates: start: 20071123, end: 20071126

REACTIONS (2)
  - CONVULSION [None]
  - TREMOR [None]
